FAERS Safety Report 4627725-7 (Version None)
Quarter: 2005Q2

REPORT INFORMATION
  Report Type: 
  Country: None (occurrence: None)
  Receive Date: 20050401
  Receipt Date: 20020402
  Transmission Date: 20051028
  Serious: Yes (Death)
  Sender: FDA-Public Use
  Company Number: 5160

PATIENT
  Age: 15 Year
  Sex: Female

DRUGS (3)
  1. CYTARABINE [Suspect]
     Indication: ACUTE MONOCYTIC LEUKAEMIA
  2. DAUNORUBICIN [Suspect]
     Indication: ACUTE MONOCYTIC LEUKAEMIA
  3. PREDNISOLONE [Suspect]

REACTIONS (11)
  - ABDOMINAL TENDERNESS [None]
  - ACUTE MONOCYTIC LEUKAEMIA [None]
  - APHTHOUS STOMATITIS [None]
  - BLOOD CREATININE INCREASED [None]
  - BLOOD UREA INCREASED [None]
  - BLOOD URIC ACID INCREASED [None]
  - GINGIVAL HYPERTROPHY [None]
  - HAEMOGLOBIN DECREASED [None]
  - NEUTROPENIA [None]
  - SEPSIS [None]
  - SPLENOMEGALY [None]
